FAERS Safety Report 5586192-X (Version None)
Quarter: 2007Q4

REPORT INFORMATION
  Report Type: 
  Country: None (occurrence: None)
  Receive Date: 20071203
  Receipt Date: 20070727
  Transmission Date: 20080405
  Serious: Yes (Other)
  Sender: FDA-Public Use
  Company Number: US020832

PATIENT
  Sex: Male

DRUGS (9)
  1. TRISENOX [Suspect]
     Indication: ACUTE PROMYELOCYTIC LEUKAEMIA
     Dosage: 12 MG DAILY MONDAY-FRIDAY INTRAVENOUS DRIP
     Route: 041
     Dates: start: 20070709, end: 20070723
  2. TRISENOX [Suspect]
     Indication: ACUTE PROMYELOCYTIC LEUKAEMIA
     Dosage: 6 MG DAILY MONDAY-FRIDAY INTRAVENOUS DRIP
     Route: 041
     Dates: end: 20070801
  3. ALLOPURINOL [Suspect]
  4. BACLOFEN [Concomitant]
  5. VICODIN [Concomitant]
  6. RESTORIL /00393701/ [Concomitant]
  7. POTASSIUM CHLORIDE [Concomitant]
  8. COMPAZINE [Concomitant]
  9. RANITIDINE [Concomitant]

REACTIONS (3)
  - ALANINE AMINOTRANSFERASE INCREASED [None]
  - ASPARTATE AMINOTRANSFERASE INCREASED [None]
  - NEUTROPENIA [None]
